FAERS Safety Report 8506730-4 (Version None)
Quarter: 2012Q3

REPORT INFORMATION
  Report Type: 
  Country: None (occurrence: None)
  Receive Date: 20120702
  Receipt Date: 20120619
  Transmission Date: 20120928
  Serious: Yes (Hospitalization)
  Sender: FDA-Public Use
  Company Number: 2012SP034084

PATIENT
  Age: 73 Year
  Sex: Female

DRUGS (1)
  1. VICTRELIS [Suspect]
     Indication: HEPATITIS C
     Dosage: 800 MG;TID;PO
     Route: 048
     Dates: start: 20120401, end: 20120601

REACTIONS (5)
  - ASTHENIA [None]
  - WHITE BLOOD CELL COUNT DECREASED [None]
  - VOMITING [None]
  - RED BLOOD CELL COUNT DECREASED [None]
  - DRUG INTOLERANCE [None]
